FAERS Safety Report 5164303-8 (Version None)
Quarter: 2006Q4

REPORT INFORMATION
  Report Type: 
  Country: None (occurrence: None)
  Receive Date: 20061129
  Receipt Date: 20061129
  Transmission Date: 20070319
  Serious: Yes (Other)
  Sender: FDA-Public Use
  Company Number: None

PATIENT
  Age: 57 Year
  Sex: Male
  Weight: 79.8331 kg

DRUGS (3)
  1. MOTRIN [Suspect]
     Indication: ENDODONTIC PROCEDURE
     Dosage: 1 1 PO
     Route: 048
     Dates: start: 20050115, end: 20061127
  2. MOTRIN [Suspect]
     Indication: PAIN MANAGEMENT
     Dosage: 1 1 PO
     Route: 048
     Dates: start: 20050115, end: 20061127
  3. MOTRIN [Concomitant]

REACTIONS (2)
  - SINUS CONGESTION [None]
  - SNEEZING [None]
